FAERS Safety Report 8476149-3 (Version None)
Quarter: 2012Q2

REPORT INFORMATION
  Report Type: 
  Country: None (occurrence: None)
  Receive Date: 20120628
  Receipt Date: 20120619
  Transmission Date: 20120825
  Serious: Yes (Other)
  Sender: FDA-Public Use
  Company Number: US-ELI_LILLY_AND_COMPANY-US201106002211

PATIENT
  Sex: Female

DRUGS (27)
  1. PROVENTIL                               /USA/ [Concomitant]
     Dosage: UNK, UNKNOWN
  2. LEVOTHYROXINE [Concomitant]
     Dosage: UNK, UNKNOWN
  3. SPIRONOLACTONE [Concomitant]
     Dosage: UNK, QD
  4. CROMOLYN SODIUM [Concomitant]
     Dosage: UNK, UNKNOWN
  5. FISH OIL [Concomitant]
     Dosage: UNK, UNKNOWN
  6. PRILOSEC [Concomitant]
     Dosage: 40 MG, BID
  7. CELEXA [Concomitant]
     Indication: DEPRESSION
     Dosage: UNK, UNKNOWN
  8. CALCIUM [Concomitant]
     Dosage: 1200 MG, QD
  9. VOLTAREN                                /SCH/ [Concomitant]
     Indication: ARTHRALGIA
     Dosage: UNK, UNKNOWN
  10. FORTEO [Suspect]
     Dosage: 20 UG, QD
  11. FORTEO [Suspect]
     Dosage: 20 UG, QD
  12. LIDOCAINE HCL VISCOUS [Concomitant]
     Indication: NON-CARDIAC CHEST PAIN
     Dosage: UNK, UNKNOWN
  13. TRAZODONE HCL [Concomitant]
     Indication: DEPRESSION
     Dosage: UNK, UNKNOWN
  14. VITAMIN D [Concomitant]
     Dosage: UNK, UNKNOWN
  15. SOMA [Concomitant]
     Dosage: 350 MG, TID
  16. HYDROMORPHONE HCL [Concomitant]
     Indication: PAIN
     Dosage: UNK, PRN
  17. FOLIC [Concomitant]
     Dosage: UNK, UNKNOWN
  18. MIRALAX [Concomitant]
     Indication: CONSTIPATION
     Dosage: UNK, UNKNOWN
  19. FORTEO [Suspect]
     Dosage: 20 UG, QD
  20. FORTEO [Suspect]
     Dosage: 20 UG, QD
  21. NORVASC [Concomitant]
     Dosage: 2.5 MG, QD
  22. MELOXICAM [Concomitant]
     Dosage: UNK
  23. FORTEO [Suspect]
     Indication: OSTEOPOROSIS
     Dosage: 20 UG, QD
     Dates: start: 20110506, end: 20120603
  24. LEVSIN PB [Concomitant]
     Dosage: UNK, UNKNOWN
  25. FORTEO [Suspect]
     Dosage: 20 UG, QD
  26. DITROPAN [Concomitant]
     Dosage: 15 MG, BID
  27. DONNATAL [Concomitant]
     Dosage: UNK, UNKNOWN

REACTIONS (30)
  - GAIT DISTURBANCE [None]
  - ARTHRITIS [None]
  - OEDEMA PERIPHERAL [None]
  - JAW DISORDER [None]
  - DEHYDRATION [None]
  - ASTHENIA [None]
  - DYSPEPSIA [None]
  - ABDOMINAL PAIN [None]
  - BLOOD PRESSURE DECREASED [None]
  - BONE PAIN [None]
  - PAIN IN EXTREMITY [None]
  - VOMITING [None]
  - NAUSEA [None]
  - ASTHMA [None]
  - DEPRESSION [None]
  - WHITE BLOOD CELL COUNT DECREASED [None]
  - BUNION [None]
  - FOOT DEFORMITY [None]
  - VASCULAR INJURY [None]
  - INJECTION SITE HAEMATOMA [None]
  - CONSTIPATION [None]
  - BLOOD SODIUM DECREASED [None]
  - HICCUPS [None]
  - WHITE BLOOD CELL COUNT INCREASED [None]
  - NEUTROPHIL COUNT DECREASED [None]
  - INFLUENZA [None]
  - PANCREATIC CARCINOMA [None]
  - INJECTION SITE PRURITUS [None]
  - PAIN IN JAW [None]
  - MUSCLE SPASMS [None]
